FAERS Safety Report 5047450-0 (Version None)
Quarter: 2006Q3

REPORT INFORMATION
  Report Type: 
  Country: None (occurrence: None)
  Receive Date: 20060703
  Receipt Date: 20060620
  Transmission Date: 20061208
  Serious: Yes (Death, Other)
  Sender: FDA-Public Use
  Company Number: GXKR2006US03510

PATIENT
  Age: 16 Year
  Sex: Male

DRUGS (6)
  1. DEXAMETHASONE [Suspect]
     Indication: ACUTE PROMYELOCYTIC LEUKAEMIA
     Dosage: 2 2-WEEK COURSES
  2. ETOPOSIDE (NGX) (ETOPOSIDE) [Suspect]
     Indication: ACUTE PROMYELOCYTIC LEUKAEMIA
     Dosage: 180 MG
  3. CYTARABINE [Suspect]
     Indication: ACUTE PROMYELOCYTIC LEUKAEMIA
     Dosage: SEE IMAGE
     Route: 037
  4. CYTARABINE [Suspect]
     Indication: ACUTE PROMYELOCYTIC LEUKAEMIA
     Dosage: SEE IMAGE
     Route: 037
  5. TIOGUANINE (TIOGUANINE) [Suspect]
     Indication: ACUTE PROMYELOCYTIC LEUKAEMIA
     Dosage: 180 MG
  6. DAUNORUBICIN HCL [Suspect]
     Indication: ACUTE PROMYELOCYTIC LEUKAEMIA
     Dosage: 38 MG

REACTIONS (6)
  - DRUG TOXICITY [None]
  - METASTASES TO LYMPH NODES [None]
  - NEPHRECTOMY [None]
  - RENAL CELL CARCINOMA STAGE UNSPECIFIED [None]
  - RENAL FAILURE CHRONIC [None]
  - SUDDEN DEATH [None]
